FAERS Safety Report 16991624 (Version 2)
Quarter: 2019Q4

REPORT INFORMATION
  Report Type: Spontaneous
  Country: US (occurrence: US)
  Receive Date: 20191104
  Receipt Date: 20191216
  Transmission Date: 20200122
  Serious: Yes (Death, Hospitalization)
  Sender: FDA-Public Use
  Company Number: US-TEVA-2007R083867

PATIENT
  Age: 66 Year
  Sex: Male

DRUGS (9)
  1. ALLOPURINOL. [Concomitant]
     Active Substance: ALLOPURINOL
     Indication: GOUT
  2. PREDNISONE. [Suspect]
     Active Substance: PREDNISONE
     Dosage: 30 MILLIGRAM DAILY; 7.5 MG DAILY INCREASED TO 30 MG DAILY
     Route: 048
  3. INSULIN [Concomitant]
     Active Substance: INSULIN NOS
     Indication: DIABETES MELLITUS
  4. SIMVASTATIN. [Suspect]
     Active Substance: SIMVASTATIN
     Indication: HYPERLIPIDAEMIA
     Dosage: 60 MILLIGRAM DAILY; 30-60 MG DAILY
     Route: 048
  5. METHYLPREDNISOLONE. [Interacting]
     Active Substance: METHYLPREDNISOLONE
     Indication: INFLAMMATION
     Dosage: 500 MILLIGRAM DAILY;
     Route: 042
  6. CICLOSPORIN [Interacting]
     Active Substance: CYCLOSPORINE
     Dosage: 150 MILLIGRAM DAILY; 150 MG
     Route: 065
  7. COLCHICINE. [Interacting]
     Active Substance: COLCHICINE
     Dosage: 1.2 MILLIGRAM DAILY; 1.2 MG
     Route: 048
  8. PROPOFOL. [Interacting]
     Active Substance: PROPOFOL
     Indication: SEDATION
     Dosage: 30 UG/KG DAILY;
     Route: 042
  9. MYCOPHENOLATE [Concomitant]
     Active Substance: MYCOPHENOLIC ACID

REACTIONS (7)
  - Rhabdomyolysis [Fatal]
  - Myopathy toxic [Fatal]
  - Drug interaction [Fatal]
  - Oliguria [Unknown]
  - Pneumonia [Fatal]
  - Septic shock [Fatal]
  - Weight decreased [Unknown]
